FAERS Safety Report 13918146 (Version 1)
Quarter: 2017Q3

REPORT INFORMATION
  Report Type: Spontaneous
  Country: US (occurrence: US)
  Receive Date: 20170829
  Receipt Date: 20170829
  Transmission Date: 20171127
  Serious: No
  Sender: FDA-Public Use
  Company Number: US-SA-2016SA232809

PATIENT
  Sex: Female

DRUGS (3)
  1. MINERALS NOS/FOLIC ACID/VITAMINS NOS/IRON [Concomitant]
     Dates: start: 201511
  2. IRON SUCROSE [Concomitant]
     Active Substance: IRON SUCROSE
     Dates: start: 20160726
  3. FABRAZYME [Suspect]
     Active Substance: AGALSIDASE BETA
     Indication: FABRY^S DISEASE
     Route: 065

REACTIONS (1)
  - Exposure during pregnancy [Unknown]
